FAERS Safety Report 9321924 (Version 1)
Quarter: 2013Q2

REPORT INFORMATION
  Report Type: Spontaneous
  Country: US (occurrence: US)
  Receive Date: 20130531
  Receipt Date: 20130531
  Transmission Date: 20140414
  Serious: Yes (Other)
  Sender: FDA-Public Use
  Company Number: US-PFIZER INC-2013136854

PATIENT
  Age: 55 Year
  Sex: Male
  Weight: 108.84 kg

DRUGS (3)
  1. ACCUPRIL [Suspect]
     Indication: DIABETES MELLITUS
     Dosage: 500 MG, 4X/DAY
     Route: 048
  2. METFORMIN [Concomitant]
     Dosage: 500 MG, 2X/DAY
     Route: 048
  3. LAC-HYDRIN [Concomitant]
     Dosage: 1 APP, 2X/WEEK
     Route: 061

REACTIONS (7)
  - Off label use [Unknown]
  - Diabetes mellitus [Unknown]
  - Hypertension [Unknown]
  - Fungal paronychia [Unknown]
  - Hyperkeratosis [Unknown]
  - Skin ulcer [Unknown]
  - Incorrect dose administered [Unknown]
